FAERS Safety Report 6536975-4 (Version None)
Quarter: 2010Q1

REPORT INFORMATION
  Report Type: 
  Country: None (occurrence: None)
  Receive Date: 20100107
  Receipt Date: 20091228
  Transmission Date: 20100710
  Serious: Yes (Hospitalization)
  Sender: FDA-Public Use
  Company Number: KV200900033

PATIENT
  Age: 55 Year
  Sex: Male
  Weight: 70.3 kg

DRUGS (4)
  1. MORPHINE SULFATE [Suspect]
     Indication: BREAKTHROUGH PAIN
     Dosage: 15 MG, QID, PRN, ORAL
     Route: 048
     Dates: start: 20080101, end: 20081001
  2. OXYCONTIN [Concomitant]
  3. VALIUM [Concomitant]
  4. DIAZEPAM [Concomitant]

REACTIONS (17)
  - ALTERED STATE OF CONSCIOUSNESS [None]
  - CONFUSIONAL STATE [None]
  - COUGH [None]
  - DIZZINESS [None]
  - DYSARTHRIA [None]
  - DYSPNOEA [None]
  - FALL [None]
  - GAIT DISTURBANCE [None]
  - HEAD INJURY [None]
  - LETHARGY [None]
  - MENTAL STATUS CHANGES [None]
  - NODULE [None]
  - OVERDOSE [None]
  - PLEURAL EFFUSION [None]
  - PLEURAL FIBROSIS [None]
  - PNEUMONIA [None]
  - WHEEZING [None]
